FAERS Safety Report 4354767-1 (Version None)
Quarter: 2004Q2

REPORT INFORMATION
  Report Type: 
  Country: None (occurrence: None)
  Receive Date: 20040507
  Receipt Date: 20040423
  Transmission Date: 20050107
  Serious: Yes (Hospitalization)
  Sender: FDA-Public Use
  Company Number: ES-AMGEN-US075067

PATIENT
  Age: 70 Year
  Sex: Male

DRUGS (3)
  1. ETANERCEPT [Suspect]
     Indication: RHEUMATOID ARTHRITIS
     Route: 058
     Dates: start: 19980626, end: 20000910
  2. NABUMETONE [Concomitant]
     Dates: start: 19980205
  3. ENALAPRIL MALEATE [Concomitant]
     Dates: start: 19990212

REACTIONS (1)
  - RETINAL DETACHMENT [None]
